FAERS Safety Report 16466050 (Version 1)
Quarter: 2019Q2

REPORT INFORMATION
  Report Type: Other
  Country: US (occurrence: US)
  Receive Date: 20190621
  Receipt Date: 20190621
  Transmission Date: 20190711
  Serious: No
  Sender: FDA-Public Use
  Company Number: US-ACORDA-ACO_158847_2019

PATIENT
  Sex: Female

DRUGS (1)
  1. INBRIJA [Suspect]
     Active Substance: LEVODOPA
     Indication: ON AND OFF PHENOMENON
     Dosage: 2 CAPSULES AS NEEDED FOR SYMPTOMS OF AN OFF PERIOD. NOT TO EXCEED 5 DOSES A DAY
     Route: 048
     Dates: start: 20190514, end: 20190520

REACTIONS (6)
  - Wrong technique in product usage process [Unknown]
  - Drug ineffective [Unknown]
  - Cough [Unknown]
  - Choking [Unknown]
  - Retching [Unknown]
  - Foreign body in respiratory tract [Unknown]
